FAERS Safety Report 7878665-1 (Version None)
Quarter: 2011Q4

REPORT INFORMATION
  Report Type: 
  Country: None (occurrence: None)
  Receive Date: 20111028
  Receipt Date: 20111019
  Transmission Date: 20120403
  Serious: Yes (Death, Hospitalization)
  Sender: FDA-Public Use
  Company Number: 2011SP050098

PATIENT
  Age: 70 Year
  Sex: Female

DRUGS (1)
  1. INTEGRILIN [Suspect]
     Indication: ACUTE CORONARY SYNDROME
     Dates: start: 20111001, end: 20111001

REACTIONS (2)
  - UNEVALUABLE EVENT [None]
  - HAEMORRHAGE [None]
